FAERS Safety Report 17062506 (Version 1)
Quarter: 2019Q4

REPORT INFORMATION
  Report Type: Spontaneous
  Country: US (occurrence: US)
  Receive Date: 20191122
  Receipt Date: 20191122
  Transmission Date: 20200122
  Serious: Yes (Death, Hospitalization)
  Sender: FDA-Public Use
  Company Number: US-CELLTRION INC.-2019US026662

PATIENT

DRUGS (3)
  1. LEFLUNOMIDE. [Suspect]
     Active Substance: LEFLUNOMIDE
     Indication: PRODUCT USED FOR UNKNOWN INDICATION
     Dosage: UNK
  2. RITUXIMAB (UNKNOWN) [Suspect]
     Active Substance: RITUXIMAB
     Indication: PLASMA CELL MYELOMA
     Dosage: UNK
     Route: 065
  3. METHYLPREDNISOLONE [METHYLPREDNISOLONE ACETATE] [Suspect]
     Active Substance: METHYLPREDNISOLONE ACETATE
     Indication: PRODUCT USED FOR UNKNOWN INDICATION
     Dosage: UNK

REACTIONS (4)
  - Encephalomyelitis [Fatal]
  - Nephritis [Fatal]
  - Gastroenteritis adenovirus [Fatal]
  - Product use in unapproved indication [Unknown]
